FAERS Safety Report 7701676-3 (Version None)
Quarter: 2011Q3

REPORT INFORMATION
  Report Type: 
  Country: None (occurrence: None)
  Receive Date: 20110822
  Receipt Date: 20110809
  Transmission Date: 20111222
  Serious: Yes (Other)
  Sender: FDA-Public Use
  Company Number: US-CELGENEUS-163-21880-11051744

PATIENT
  Sex: Female
  Weight: 86.8 kg

DRUGS (1)
  1. REVLIMID [Suspect]
     Dosage: 25 MILLIGRAM
     Route: 048
     Dates: start: 20090615

REACTIONS (3)
  - CARDIAC DISORDER [None]
  - ATRIAL FIBRILLATION [None]
  - WHITE BLOOD CELL COUNT DECREASED [None]
